FAERS Safety Report 25853463 (Version 1)
Quarter: 2025Q3

REPORT INFORMATION
  Report Type: Spontaneous
  Country: JP (occurrence: JP)
  Receive Date: 20250926
  Receipt Date: 20250926
  Transmission Date: 20251020
  Serious: Yes (Other)
  Sender: ALEXION PHARMACEUTICALS
  Company Number: JP-ASTRAZENECA-202509JPN022419JP

PATIENT
  Age: 8 Decade
  Sex: Male

DRUGS (3)
  1. IMFINZI [Suspect]
     Active Substance: DURVALUMAB
     Indication: Bile duct cancer
     Route: 065
  2. GEMCITABINE [Concomitant]
     Active Substance: GEMCITABINE
  3. CISPLATIN [Concomitant]
     Active Substance: CISPLATIN

REACTIONS (4)
  - Immune-mediated lung disease [Recovering/Resolving]
  - Immune-mediated hepatic disorder [Recovering/Resolving]
  - Pneumonia bacterial [Recovering/Resolving]
  - Cytomegalovirus infection [Recovering/Resolving]
